FAERS Safety Report 4396294-1 (Version None)
Quarter: 2004Q3

REPORT INFORMATION
  Report Type: 
  Country: None (occurrence: None)
  Receive Date: 20040713
  Receipt Date: 20040616
  Transmission Date: 20050211
  Serious: Yes (Hospitalization)
  Sender: FDA-Public Use
  Company Number: US-GLAXOSMITHKLINE-A0514887A

PATIENT
  Age: 21 Year
  Sex: Female
  Weight: 79.5 kg

DRUGS (12)
  1. ADVAIR DISKUS 100/50 [Suspect]
     Indication: ASTHMA
     Route: 055
  2. FLONASE [Suspect]
     Dosage: 2SPR TWICE PER DAY
     Route: 045
     Dates: start: 19990101
  3. PULMICORT RESPULE [Concomitant]
     Route: 055
  4. XOLAIR [Concomitant]
     Indication: ASTHMA
     Route: 058
  5. ACTONEL [Concomitant]
     Indication: OSTEOPENIA
     Dosage: 35MG WEEKLY
     Route: 048
     Dates: start: 20040607
  6. ALLEGRA [Concomitant]
     Dosage: 180MG AS REQUIRED
     Route: 048
  7. ALBUTEROL [Concomitant]
     Route: 055
  8. DARVOCET [Concomitant]
     Indication: BACK PAIN
     Route: 048
  9. NEURONTIN [Concomitant]
     Indication: BACK PAIN
     Route: 048
  10. SOMA [Concomitant]
     Indication: BACK PAIN
     Route: 048
  11. SKELAXIN [Concomitant]
     Indication: BACK PAIN
     Route: 048
  12. NEXIUM [Concomitant]
     Dosage: 40MG PER DAY
     Route: 048
     Dates: start: 20040607

REACTIONS (5)
  - BACTERIAL INFECTION [None]
  - HERPES SIMPLEX [None]
  - HERPES VIRUS INFECTION [None]
  - HYPERSENSITIVITY [None]
  - IMMUNOSUPPRESSION [None]
